FAERS Safety Report 5575157-X (Version None)
Quarter: 2007Q4

REPORT INFORMATION
  Report Type: 
  Country: None (occurrence: None)
  Receive Date: 20071130
  Receipt Date: 20070801
  Transmission Date: 20080405
  Serious: No
  Sender: FDA-Public Use
  Company Number: US200708000499

PATIENT
  Age: 59 Year
  Sex: Male

DRUGS (6)
  1. BYETTA [Suspect]
     Dosage: 5 UG, 2/D, SUBCUTANEOUS ; 5 UG, 2/D, SUBCUTANEOUS
     Route: 058
     Dates: start: 20070723, end: 20070725
  2. ANTIHYPERTENSIVES [Concomitant]
  3. DIURETICS [Concomitant]
  4. ANTIDEPRESSANTS [Concomitant]
  5. VITAMINS [Concomitant]
  6. .. [Concomitant]

REACTIONS (4)
  - BLOOD PRESSURE INCREASED [None]
  - DRUG ADMINISTRATION ERROR [None]
  - NAUSEA [None]
  - PHARYNGEAL OEDEMA [None]
